FAERS Safety Report 16007315 (Version 1)
Quarter: 2019Q1

REPORT INFORMATION
  Report Type: Report from Study
  Country: US (occurrence: US)
  Receive Date: 20190226
  Receipt Date: 20190226
  Transmission Date: 20190418
  Serious: Yes (Hospitalization)
  Sender: FDA-Public Use
  Company Number: US-JNJFOC-20190234151

PATIENT
  Sex: Male

DRUGS (9)
  1. DEPAKOTE [Concomitant]
     Active Substance: DIVALPROEX SODIUM
  2. ELIQUIS [Concomitant]
     Active Substance: APIXABAN
  3. LIPITOR [Concomitant]
     Active Substance: ATORVASTATIN CALCIUM
  4. DOXYCYCLINE HYCLATE. [Concomitant]
     Active Substance: DOXYCYCLINE HYCLATE
  5. LOSARTAN. [Concomitant]
     Active Substance: LOSARTAN
  6. TIOTIXENE [Concomitant]
     Active Substance: THIOTHIXENE
  7. TRIHEXYPHENIDYL [Concomitant]
     Active Substance: TRIHEXYPHENIDYL
  8. METOPROLOL TARTRATE. [Concomitant]
     Active Substance: METOPROLOL TARTRATE
  9. IMBRUVICA [Suspect]
     Active Substance: IBRUTINIB
     Indication: CHRONIC LYMPHOCYTIC LEUKAEMIA
     Route: 048
     Dates: start: 20181102

REACTIONS (6)
  - Asthenia [Unknown]
  - Balance disorder [Unknown]
  - Hypotension [Unknown]
  - Joint swelling [Unknown]
  - Haemorrhage [Unknown]
  - Peripheral swelling [Unknown]
